FAERS Safety Report 11189580 (Version 1)
Quarter: 2015Q2

REPORT INFORMATION
  Report Type: Spontaneous
  Country: US (occurrence: None)
  Receive Date: 20150612
  Receipt Date: 20150612
  Transmission Date: 20150821
  Serious: Yes (Other)
  Sender: FDA-Public Use
  Company Number: None

PATIENT
  Age: 48 Year
  Sex: Female

DRUGS (1)
  1. STELARA [Suspect]
     Active Substance: USTEKINUMAB
     Indication: PSORIASIS
     Dosage: Q12 WEEKS
     Route: 058
     Dates: start: 20141022, end: 201506

REACTIONS (3)
  - Asthenia [None]
  - Treatment failure [None]
  - Arthralgia [None]

NARRATIVE: CASE EVENT DATE: 20150611
